FAERS Safety Report 5374844-6 (Version None)
Quarter: 2007Q2

REPORT INFORMATION
  Report Type: 
  Country: None (occurrence: None)
  Receive Date: 20070629
  Receipt Date: 20070625
  Transmission Date: 20071010
  Serious: Yes (Disabling)
  Sender: FDA-Public Use
  Company Number: B0473750A

PATIENT
  Age: 57 Year
  Sex: Female
  Weight: 74 kg

DRUGS (4)
  1. AVANDAMET [Suspect]
     Dosage: 2TAB PER DAY
     Route: 065
     Dates: start: 20070122
  2. ATORVASTATIN [Concomitant]
     Route: 048
  3. TRITACE [Concomitant]
     Indication: HYPERTENSION
     Route: 048
  4. ANOPYRIN [Concomitant]
     Indication: HYPERTENSION
     Route: 048

REACTIONS (2)
  - ANKLE FRACTURE [None]
  - FALL [None]
